FAERS Safety Report 20937278 (Version 1)
Quarter: 2022Q2

REPORT INFORMATION
  Report Type: Spontaneous
  Country: PL (occurrence: PL)
  Receive Date: 20220609
  Receipt Date: 20220609
  Transmission Date: 20220720
  Serious: Yes (Hospitalization, Other)
  Sender: FDA-Public Use
  Company Number: PL-SA-SAC20220518002224

PATIENT
  Age: 1 Year
  Sex: Male
  Weight: 1.55 kg

DRUGS (1)
  1. MYOZYME [Suspect]
     Active Substance: ALGLUCOSIDASE ALFA
     Indication: Glycogen storage disease type II
     Dosage: UNK

REACTIONS (8)
  - Arrhythmia [Unknown]
  - Anaemia [Unknown]
  - Anxiety [Unknown]
  - Asthenia [Unknown]
  - Contusion [Unknown]
  - Respiratory disorder [Unknown]
  - Oxygen saturation decreased [Recovering/Resolving]
  - Blood pressure fluctuation [Recovering/Resolving]

NARRATIVE: CASE EVENT DATE: 20190828
